FAERS Safety Report 21005768 (Version 2)
Quarter: 2022Q3

REPORT INFORMATION
  Report Type: Report from Study
  Country: CA (occurrence: CA)
  Receive Date: 20220624
  Receipt Date: 20220720
  Transmission Date: 20221027
  Serious: Yes (Death, Hospitalization, Other)
  Sender: FDA-Public Use
  Company Number: CA-NOVARTISPH-NVSC2022CA136784

PATIENT
  Sex: Female

DRUGS (3)
  1. KISQALI [Suspect]
     Active Substance: RIBOCICLIB
     Indication: Breast cancer metastatic
     Dosage: 600 MG, QD (FOR 21/28 DAYS, THEN 7 DAYS OFF) (2 KISQALI PILLS)
     Route: 048
     Dates: start: 20220602, end: 20220602
  2. KISQALI [Suspect]
     Active Substance: RIBOCICLIB
     Dosage: 400 MG, QD (FOR 21/28 DAYS, THEN 7 DAYS OFF)
     Route: 048
     Dates: start: 202206
  3. FULVESTRANT [Suspect]
     Active Substance: FULVESTRANT
     Indication: Product used for unknown indication
     Dosage: UNK (2 FULVESTRANT INJECTIONS)
     Route: 065
     Dates: start: 20220601

REACTIONS (6)
  - Death [Fatal]
  - Feeling abnormal [Unknown]
  - Hepatic function abnormal [Unknown]
  - Liver injury [Unknown]
  - Vomiting [Unknown]
  - Ascites [Unknown]

NARRATIVE: CASE EVENT DATE: 20220101
